FAERS Safety Report 20570313 (Version 1)
Quarter: 2022Q1

REPORT INFORMATION
  Report Type: Report from Study
  Country: AT (occurrence: None)
  Receive Date: 20220309
  Receipt Date: 20220309
  Transmission Date: 20220423
  Serious: Yes (Other)
  Sender: FDA-Public Use
  Company Number: AT-Merck Healthcare KGaA-9304063

PATIENT
  Age: 51 Year
  Sex: Male

DRUGS (1)
  1. REBIF [Suspect]
     Active Substance: INTERFERON BETA-1A
     Indication: Multiple sclerosis
     Dosage: THERAPY START DATE: 6 YEARS AGO (AS OF 03 MAR 2022)
     Route: 058

REACTIONS (3)
  - Abdominal neoplasm [Not Recovered/Not Resolved]
  - Abdominal adhesions [Not Recovered/Not Resolved]
  - Abdominal wall operation [Unknown]

NARRATIVE: CASE EVENT DATE: 20220303
